FAERS Safety Report 4303390-3 (Version None)
Quarter: 2004Q1

REPORT INFORMATION
  Report Type: 
  Country: None (occurrence: None)
  Receive Date: 20040223
  Receipt Date: 20040209
  Transmission Date: 20041129
  Serious: Yes (Death)
  Sender: FDA-Public Use
  Company Number: 204631

PATIENT
  Age: 58 Year
  Sex: Male

DRUGS (5)
  1. RITUXIMAB (RITUXIMAB) CONC FOR SOLUTION FOR INFUSION [Suspect]
     Indication: LYMPHOMA
     Dosage: INTRAVENOUS
     Route: 042
     Dates: start: 20031002, end: 20031119
  2. CYCLOPHOSPHAMIDE (CYLOPHOSPHAMIDE) [Concomitant]
  3. VINCRISTINE [Concomitant]
  4. DOXORUBICIN HCL [Concomitant]
  5. PREDNISOLONE [Concomitant]

REACTIONS (1)
  - HEPATIC FAILURE [None]
